FAERS Safety Report 14691404 (Version 1)
Quarter: 2018Q1

REPORT INFORMATION
  Report Type: Spontaneous
  Country: US (occurrence: US)
  Receive Date: 20180328
  Receipt Date: 20180328
  Transmission Date: 20180509
  Serious: Yes (Hospitalization)
  Sender: FDA-Public Use
  Company Number: US-THE RITEDOSE CORPORATION-2018RIT000081

PATIENT

DRUGS (5)
  1. IPRATROPIUM BROMIDE INHALATION SOLUTION [Suspect]
     Active Substance: IPRATROPIUM BROMIDE
     Indication: HYPERSENSITIVITY
  2. ALBUTEROL SULFATE INHALATION SOLUTION [Suspect]
     Active Substance: ALBUTEROL SULFATE
     Indication: CHRONIC OBSTRUCTIVE PULMONARY DISEASE
     Dosage: 1 DF, UNK
     Route: 055
  3. DUONEB [Concomitant]
     Active Substance: ALBUTEROL SULFATE\IPRATROPIUM BROMIDE
  4. ALBUTEROL SULFATE INHALATION SOLUTION [Suspect]
     Active Substance: ALBUTEROL SULFATE
     Indication: HYPERSENSITIVITY
  5. IPRATROPIUM BROMIDE INHALATION SOLUTION [Suspect]
     Active Substance: IPRATROPIUM BROMIDE
     Indication: CHRONIC OBSTRUCTIVE PULMONARY DISEASE
     Dosage: 1 DF, UNK
     Route: 055

REACTIONS (5)
  - Intentional product misuse [Unknown]
  - Product use in unapproved indication [Unknown]
  - Therapy cessation [Unknown]
  - Catheterisation cardiac [Unknown]
  - No adverse event [Unknown]
